FAERS Safety Report 18489800 (Version 1)
Quarter: 2020Q4

REPORT INFORMATION
  Report Type: Spontaneous
  Country: US (occurrence: US)
  Receive Date: 20201111
  Receipt Date: 20201111
  Transmission Date: 20210114
  Serious: No
  Sender: FDA-Public Use
  Company Number: US-ELI_LILLY_AND_COMPANY-US202011002781

PATIENT
  Sex: Male

DRUGS (3)
  1. HUMULIN R [Suspect]
     Active Substance: INSULIN HUMAN
     Indication: DIABETES MELLITUS
     Dosage: 19 U, DAILY (17-19)
     Route: 065
  2. HUMULIN N [Suspect]
     Active Substance: INSULIN HUMAN
     Dosage: UNK UNK, PRN (SLIDING SCALE AS PER BLOOD GLUCOSE)
     Route: 065
  3. HUMULIN N [Suspect]
     Active Substance: INSULIN HUMAN
     Indication: PRODUCT USED FOR UNKNOWN INDICATION
     Dosage: 43 U, DAILY
     Route: 065
     Dates: start: 1990

REACTIONS (3)
  - Drug ineffective [Recovered/Resolved]
  - Blood glucose increased [Unknown]
  - Nasopharyngitis [Unknown]
